FAERS Safety Report 5270495-2 (Version None)
Quarter: 2007Q1

REPORT INFORMATION
  Report Type: 
  Country: None (occurrence: None)
  Receive Date: 20070320
  Receipt Date: 20070312
  Transmission Date: 20070707
  Serious: Yes (Other)
  Sender: FDA-Public Use
  Company Number: JP-MERCK-0703USA03351

PATIENT
  Age: 43 Year
  Sex: Female

DRUGS (19)
  1. PEPCID [Suspect]
     Route: 041
     Dates: start: 20061122, end: 20061123
  2. TARGOCID [Concomitant]
     Route: 041
     Dates: start: 20061119, end: 20061123
  3. DORIPENEM [Concomitant]
     Route: 041
     Dates: start: 20061119, end: 20061123
  4. [THERAPY UNSPECIFIED] [Concomitant]
     Route: 041
     Dates: start: 20061121, end: 20061123
  5. PRODIF [Concomitant]
     Route: 041
     Dates: start: 20061123, end: 20061123
  6. HABEKACIN [Concomitant]
     Route: 041
     Dates: start: 20061125, end: 20061129
  7. PENTCILLIN [Concomitant]
     Route: 065
     Dates: start: 20061125, end: 20061129
  8. NEO-MINOPHAGEN C [Concomitant]
     Route: 041
     Dates: start: 20061123, end: 20061127
  9. LEUKOPROL [Concomitant]
     Route: 041
     Dates: start: 20061117, end: 20061124
  10. GRAN [Concomitant]
     Route: 041
     Dates: start: 20061125, end: 20061127
  11. CYTARABINE [Concomitant]
     Route: 041
     Dates: start: 20061107, end: 20061112
  12. SOLU-MEDROL [Concomitant]
     Route: 041
     Dates: start: 20061107, end: 20061112
  13. NOVANTRONE [Concomitant]
     Route: 041
     Dates: start: 20061109, end: 20061111
  14. NASEA [Concomitant]
     Route: 041
     Dates: start: 20061107, end: 20061112
  15. DIFLUCAN [Concomitant]
     Route: 048
     Dates: end: 20061112
  16. SWORD [Concomitant]
     Route: 048
     Dates: end: 20061122
  17. MAXIPIME [Concomitant]
     Route: 041
     Dates: start: 20061115, end: 20061118
  18. PLATELET CONCENTRATE [Concomitant]
     Route: 065
     Dates: start: 20061118
  19. MANNITOL [Concomitant]
     Route: 065
     Dates: start: 20061118, end: 20061124

REACTIONS (6)
  - ALANINE AMINOTRANSFERASE INCREASED [None]
  - ASPARTATE AMINOTRANSFERASE INCREASED [None]
  - BLOOD ALKALINE PHOSPHATASE INCREASED [None]
  - DRUG ERUPTION [None]
  - LIVER DISORDER [None]
  - LYMPHOCYTE STIMULATION TEST POSITIVE [None]
